FAERS Safety Report 22354612 (Version 1)
Quarter: 2023Q2

REPORT INFORMATION
  Report Type: Spontaneous
  Country: US (occurrence: None)
  Receive Date: 20230522
  Receipt Date: 20230522
  Transmission Date: 20230721
  Serious: Yes (Disabling)
  Sender: FDA-Public Use
  Company Number: None

PATIENT
  Age: 71 Year
  Sex: Male
  Weight: 72.9 kg

DRUGS (11)
  1. CIPROFLOXACIN [Suspect]
     Active Substance: CIPROFLOXACIN
     Indication: Cystitis
     Dosage: OTHER QUANTITY : 28 TABLET(S);?FREQUENCY : EVERY 12 HOURS;?
     Route: 048
  2. FOCALIN [Concomitant]
  3. GABAPENTIN [Concomitant]
     Active Substance: GABAPENTIN
  4. BENICAR [Concomitant]
     Active Substance: OLMESARTAN MEDOXOMIL
  5. COENZYME Q10 [Concomitant]
     Active Substance: DIETARY SUPPLEMENT\UBIDECARENONE
  6. L-LIPOIC ACID [Concomitant]
  7. TYROSINE [Concomitant]
     Active Substance: TYROSINE
  8. VITAMIN C [Concomitant]
     Active Substance: ASCORBIC ACID
  9. FISH OILS [Concomitant]
  10. ZINC [Concomitant]
  11. MAGNESIUM [Concomitant]

REACTIONS (16)
  - Confusional state [None]
  - Insomnia [None]
  - Muscular weakness [None]
  - Suicidal ideation [None]
  - Fatigue [None]
  - Headache [None]
  - Visual impairment [None]
  - Neuropathy peripheral [None]
  - Rash [None]
  - Anxiety [None]
  - Bradycardia [None]
  - Hypotension [None]
  - Blood glucose increased [None]
  - Dizziness [None]
  - Arthralgia [None]
  - Pain in extremity [None]

NARRATIVE: CASE EVENT DATE: 20230308
